FAERS Safety Report 8758544 (Version 1)
Quarter: 2012Q4

REPORT INFORMATION
  Report Type: 
  Country: US (occurrence: US)
  Receive Date: 20120829
  Receipt Date: 20120829
  Transmission Date: 20130627
  Serious: No
  Sender: FDA-Public Use
  Company Number: US-GLAXOSMITHKLINE-A0945680A

PATIENT
  Age: 85 Year
  Sex: Female

DRUGS (7)
  1. ZOVIRAX [Suspect]
     Indication: ORAL HERPES
     Route: 061
     Dates: start: 20110819
  2. AVAPRO [Concomitant]
  3. CARDIZEM [Concomitant]
  4. PLAVIX [Concomitant]
  5. DIURETIC [Concomitant]
  6. POTASSIUM [Concomitant]
  7. HYDROCODONE + ACETAMINOPHEN [Concomitant]

REACTIONS (2)
  - Epistaxis [Not Recovered/Not Resolved]
  - Nasal dryness [Not Recovered/Not Resolved]
